FAERS Safety Report 9669571 (Version 1)
Quarter: 2013Q4

REPORT INFORMATION
  Report Type: Spontaneous
  Country: US (occurrence: US)
  Receive Date: 20131105
  Receipt Date: 20131105
  Transmission Date: 20140711
  Serious: Yes (Other)
  Sender: FDA-Public Use
  Company Number: CHPA2013US016602

PATIENT
  Sex: Female

DRUGS (3)
  1. IBUPROFEN [Suspect]
  2. ALEVE [Suspect]
  3. NSAID^S [Suspect]

REACTIONS (3)
  - Peptic ulcer [Recovering/Resolving]
  - Gastrooesophageal reflux disease [Recovering/Resolving]
  - Dyspepsia [Recovering/Resolving]
